FAERS Safety Report 5523088-3 (Version None)
Quarter: 2007Q4

REPORT INFORMATION
  Report Type: 
  Country: None (occurrence: None)
  Receive Date: 20071119
  Receipt Date: 20071109
  Transmission Date: 20080405
  Serious: Yes (Hospitalization, Other)
  Sender: FDA-Public Use
  Company Number: 163-21880-07080518

PATIENT
  Age: 83 Year
  Sex: Female

DRUGS (2)
  1. REVLIMID [Suspect]
     Indication: MYELODYSPLASTIC SYNDROME
     Dosage: 5 MG 1 IN 1 D, ORAL
     Route: 048
     Dates: start: 20060814, end: 20070701
  2. PAXIL [Concomitant]

REACTIONS (6)
  - BLADDER PROLAPSE [None]
  - GAIT DISTURBANCE [None]
  - JOINT SWELLING [None]
  - OEDEMA PERIPHERAL [None]
  - TOOTH FRACTURE [None]
  - URINARY BLADDER HAEMORRHAGE [None]
